FAERS Safety Report 4938194-1 (Version None)
Quarter: 2006Q1

REPORT INFORMATION
  Report Type: 
  Country: None (occurrence: None)
  Receive Date: 20060309
  Receipt Date: 20051018
  Transmission Date: 20060701
  Serious: No
  Sender: FDA-Public Use
  Company Number: US-BRISTOL-MYERS SQUIBB COMPANY-13257860

PATIENT
  Age: 30 Year
  Sex: Male

DRUGS (1)
  1. MONISTAT-1 VAG OINT 6.5% [Suspect]
     Route: 067
     Dates: start: 20051015, end: 20051015

REACTIONS (2)
  - GENITAL BURNING SENSATION [None]
  - PENILE DISCHARGE [None]
